FAERS Safety Report 9138247 (Version 4)
Quarter: 2013Q2

REPORT INFORMATION
  Report Type: Spontaneous
  Country: CO (occurrence: CO)
  Receive Date: 20130305
  Receipt Date: 20130403
  Transmission Date: 20140414
  Serious: Yes (Other)
  Sender: FDA-Public Use
  Company Number: CO-AMGEN-COLSP2013014331

PATIENT
  Age: 54 Year
  Sex: Male

DRUGS (2)
  1. ENBREL [Suspect]
     Indication: RHEUMATOID ARTHRITIS
     Dosage: 50 MG, WEEKLY
     Route: 058
     Dates: start: 2010, end: 201211
  2. ACETAMINOPHEN W/CODEINE [Concomitant]
     Indication: PAIN
     Dosage: 500 MG, 3X/DAY
     Route: 048

REACTIONS (6)
  - Deafness [Unknown]
  - Ear disorder [Unknown]
  - Osteoarthritis [Unknown]
  - Middle ear inflammation [Recovered/Resolved]
  - Back pain [Not Recovered/Not Resolved]
  - Drug ineffective [Unknown]
